FAERS Safety Report 5708413-2 (Version None)
Quarter: 2008Q2

REPORT INFORMATION
  Report Type: 
  Country: None (occurrence: None)
  Receive Date: 20080417
  Receipt Date: 20080407
  Transmission Date: 20081010
  Serious: Yes (Other)
  Sender: FDA-Public Use
  Company Number: GB-PFIZER INC-2008018752

PATIENT
  Age: 69 Year
  Sex: Female
  Weight: 77 kg

DRUGS (2)
  1. CHAMPIX [Suspect]
     Indication: SMOKING CESSATION THERAPY
     Route: 048
     Dates: start: 20080120, end: 20080131
  2. FLUOXETINE HYDROCHLORIDE [Concomitant]
     Indication: DYSTHYMIC DISORDER
     Route: 048

REACTIONS (7)
  - DEPRESSION [None]
  - HEADACHE [None]
  - NAUSEA [None]
  - NOCTURIA [None]
  - SLEEP DISORDER [None]
  - SUICIDAL IDEATION [None]
  - THERAPEUTIC RESPONSE DECREASED [None]
